FAERS Safety Report 5733212-5 (Version None)
Quarter: 2008Q2

REPORT INFORMATION
  Report Type: 
  Country: None (occurrence: None)
  Receive Date: 20080509
  Receipt Date: 20080505
  Transmission Date: 20081010
  Serious: Yes (Hospitalization)
  Sender: FDA-Public Use
  Company Number: IT-BAYER-200817855GPV

PATIENT
  Age: 72 Year
  Sex: Male

DRUGS (4)
  1. ACETYLSALICYLIC ACID SRT [Suspect]
     Indication: ANTICOAGULANT THERAPY
     Dosage: TOTAL DAILY DOSE: 100 MG  UNIT DOSE: 100 MG
     Route: 048
     Dates: start: 20000101, end: 20080422
  2. TORADOL [Suspect]
     Indication: NECK PAIN
     Route: 048
     Dates: start: 20080415, end: 20080422
  3. PANTOPAN (PANTOPRAZOLE) [Suspect]
     Indication: GASTRITIS EROSIVE
     Dosage: TOTAL DAILY DOSE: 20 MG  UNIT DOSE: 20 MG
     Route: 048
     Dates: start: 20000101, end: 20080422
  4. URBASON (METHYLPREDNISOLONE) [Concomitant]
     Indication: DRUG USE FOR UNKNOWN INDICATION
     Route: 042
     Dates: start: 20080409, end: 20080416

REACTIONS (1)
  - GASTRIC ULCER [None]
